FAERS Safety Report 18634678 (Version 1)
Quarter: 2020Q4

REPORT INFORMATION
  Report Type: Spontaneous
  Country: US (occurrence: US)
  Receive Date: 20201218
  Receipt Date: 20201218
  Transmission Date: 20210114
  Serious: Yes (Other)
  Sender: FDA-Public Use
  Company Number: US-NOVOPROD-774018

PATIENT
  Age: 23 Year
  Sex: Female

DRUGS (2)
  1. LEVEMIR [Suspect]
     Active Substance: INSULIN DETEMIR
     Dosage: 20 IU, QD (AT BEDTIME - DECREASED TO 20 UNITS ON NIGHT OF 03-DEC-2020
     Route: 058
     Dates: start: 20201203, end: 20201203
  2. LEVEMIR [Suspect]
     Active Substance: INSULIN DETEMIR
     Indication: GESTATIONAL DIABETES
     Dosage: 34 IU, QD
     Route: 058
     Dates: start: 20201202

REACTIONS (8)
  - Vomiting [Unknown]
  - Lethargy [Unknown]
  - Pharyngeal swelling [Recovered/Resolved]
  - Aphonia [Recovered/Resolved]
  - Fatigue [Unknown]
  - Rash [Recovered/Resolved]
  - Maternal exposure during pregnancy [Recovered/Resolved]
  - Throat irritation [Recovered/Resolved]

NARRATIVE: CASE EVENT DATE: 20201202
